FAERS Safety Report 4792502-3 (Version None)
Quarter: 2005Q4

REPORT INFORMATION
  Report Type: 
  Country: None (occurrence: None)
  Receive Date: 20051010
  Receipt Date: 20050930
  Transmission Date: 20060501
  Serious: Yes (Hospitalization)
  Sender: FDA-Public Use
  Company Number: FR-JNJFOC-20051000148

PATIENT
  Age: 83 Year
  Sex: Female

DRUGS (10)
  1. RISPERDAL [Suspect]
     Route: 048
     Dates: start: 20050201, end: 20050812
  2. DAFLON [Suspect]
     Indication: VENOUS INSUFFICIENCY
     Route: 048
  3. ATARAX [Suspect]
     Indication: DRUG USE FOR UNKNOWN INDICATION
     Route: 048
  4. DETENSIEL [Concomitant]
  5. ALDALIX [Concomitant]
  6. ALDALIX [Concomitant]
     Indication: HYPERTENSION
     Dosage: DOSE= 1 TABLET/DAY
  7. MYSOLINE [Concomitant]
  8. MYSOLINE [Concomitant]
     Indication: TREMOR
  9. DI-ANTALVIC [Concomitant]
  10. DI-ANTALVIC [Concomitant]

REACTIONS (3)
  - FALL [None]
  - HAND FRACTURE [None]
  - PANCYTOPENIA [None]
